FAERS Safety Report 6171957-6 (Version None)
Quarter: 2009Q2

REPORT INFORMATION
  Report Type: 
  Country: None (occurrence: None)
  Receive Date: 20090429
  Receipt Date: 20090420
  Transmission Date: 20091009
  Serious: Yes (Hospitalization)
  Sender: FDA-Public Use
  Company Number: PHEH2009US03141

PATIENT
  Sex: Male
  Weight: 53.061 kg

DRUGS (15)
  1. RECLAST [Suspect]
     Indication: OSTEOPOROSIS
     Dosage: 5 MG IV ONCE YEARLY
     Dates: start: 20090324, end: 20090324
  2. PROSCAR [Concomitant]
     Dosage: 5 MG QD
  3. HYZAAR [Concomitant]
     Dosage: 12.5 MG QD
  4. ZOLOFT [Concomitant]
     Dosage: 150 MG QD
  5. RETOLEN [Concomitant]
     Dosage: 20 MG QAM
  6. LUNESTA [Concomitant]
     Dosage: UNK
  7. BYSTOLIC [Concomitant]
     Dosage: 10 MG QD
  8. ACIPHEX [Concomitant]
     Dosage: 20 MG
  9. AMBIEN [Concomitant]
     Dosage: 6.25 MG, PRN
  10. B12 ^RECIP^ [Concomitant]
     Dosage: UNK
  11. CENTRUM SILVER [Concomitant]
     Dosage: UNK
  12. ASPIRIN [Concomitant]
     Dosage: UNK
  13. ALEVE [Concomitant]
     Dosage: UNK
  14. TYLENOL [Concomitant]
     Dosage: UNK
  15. ACTIFED [Concomitant]
     Dosage: UNK

REACTIONS (5)
  - ABASIA [None]
  - ASTHENIA [None]
  - BLOOD CALCIUM DECREASED [None]
  - CONFUSIONAL STATE [None]
  - MYALGIA [None]
